FAERS Safety Report 8915435 (Version 7)
Quarter: 2013Q1

REPORT INFORMATION
  Report Type: Spontaneous
  Country: US (occurrence: US)
  Receive Date: 20121119
  Receipt Date: 20130213
  Transmission Date: 20140127
  Serious: No
  Sender: FDA-Public Use
  Company Number: US-PFIZER INC-2012286817

PATIENT
  Age: 63 Year
  Sex: Female
  Weight: 65.31 kg

DRUGS (11)
  1. EFFEXOR XR [Suspect]
     Indication: PSYCHOLOGICAL TRAUMA
     Dosage: 150 MG, 30 TAB PER MONTH
     Route: 048
     Dates: start: 20110223
  2. CALCIUM 500 + D [Concomitant]
     Dosage: 1250 MG, UNK
  3. CLORAZEPATE DIPOTASSIUM [Concomitant]
     Dosage: 7.5 MG, 2X/DAY,
     Route: 048
  4. HYDROCHLOROTHIAZIDE [Concomitant]
     Indication: HYPERTENSION
     Dosage: 25 MG, 1X/DAY,
     Route: 048
  5. LOTENSIN [Concomitant]
     Dosage: 40 MG, 1X/DAY
     Route: 048
  6. METOPROLOL SUCCINATE [Concomitant]
     Dosage: 50 MG, 1X/DAY,
     Route: 048
  7. PRAVASTATIN [Concomitant]
     Dosage: 40 MG, QHS
     Route: 048
  8. AMLODIPINE [Concomitant]
     Dosage: 5 MG, 1X/DAY,
     Route: 048
  9. KLOR-CON 8 [Concomitant]
     Dosage: 8 MEQ, 1X/DAY
     Route: 048
  10. TRANXENE [Concomitant]
     Indication: ANXIETY
     Dosage: UNK
  11. METOPROLOL [Concomitant]
     Indication: HYPERTENSION
     Dosage: UNK

REACTIONS (4)
  - Carpal tunnel syndrome [Recovered/Resolved]
  - Arthralgia [Unknown]
  - Panic attack [Unknown]
  - Hyperlipidaemia [Unknown]
